FAERS Safety Report 4371458-1 (Version None)
Quarter: 2004Q2

REPORT INFORMATION
  Report Type: 
  Country: None (occurrence: None)
  Receive Date: 20040604
  Receipt Date: 20040520
  Transmission Date: 20050107
  Serious: Yes (Other)
  Sender: FDA-Public Use
  Company Number: A-US2004-05648

PATIENT
  Age: 76 Year
  Sex: Male

DRUGS (4)
  1. TRACLEER [Suspect]
     Indication: PULMONARY HYPERTENSION
     Dosage: 62.5 MG, BID, ORAL
     Route: 048
     Dates: start: 20030825, end: 20030928
  2. POTASSIUM CHLORIDE [Concomitant]
  3. ENALAPRIL MALEATE [Concomitant]
  4. NIFEDIPINE [Concomitant]

REACTIONS (7)
  - ASPARTATE AMINOTRANSFERASE INCREASED [None]
  - BLOOD BILIRUBIN INCREASED [None]
  - BLOOD SODIUM DECREASED [None]
  - DYSPNOEA [None]
  - LEUKOPENIA [None]
  - NEUTROPHIL PERCENTAGE DECREASED [None]
  - THROMBOCYTOPENIA [None]
